FAERS Safety Report 8314091-9 (Version None)
Quarter: 2012Q2

REPORT INFORMATION
  Report Type: 
  Country: None (occurrence: None)
  Receive Date: 20120426
  Receipt Date: 20120419
  Transmission Date: 20120825
  Serious: Yes (Hospitalization, Other)
  Sender: FDA-Public Use
  Company Number: JP-PFIZER INC-2012053097

PATIENT
  Age: 32 Year
  Sex: Male

DRUGS (4)
  1. SULFASALAZINE [Suspect]
     Indication: COLITIS ULCERATIVE
     Dosage: 8 TABLETS/DAY
     Route: 048
     Dates: start: 20080314, end: 20080504
  2. RUEFRIEN [Concomitant]
     Indication: NASOPHARYNGITIS
     Dosage: UNK, 3X/DAILY
     Route: 048
     Dates: start: 20080421, end: 20080428
  3. IBRUPROFEN [Concomitant]
     Indication: ANTIPYRESIS
     Dosage: 3 TABLETS/DAY
     Route: 048
     Dates: start: 20080421, end: 20080428
  4. TOMIRON [Concomitant]
     Indication: ANTIPYRESIS
     Dosage: 3 TABLETS/DAY
     Route: 048
     Dates: start: 20080421, end: 20080428

REACTIONS (2)
  - LEUKOCYTOSIS [None]
  - DRUG RASH WITH EOSINOPHILIA AND SYSTEMIC SYMPTOMS [None]
